FAERS Safety Report 7219209-7 (Version None)
Quarter: 2011Q1

REPORT INFORMATION
  Report Type: 
  Country: None (occurrence: None)
  Receive Date: 20110111
  Receipt Date: 20101228
  Transmission Date: 20110831
  Serious: Yes (Death, Life-Threatening, Other)
  Sender: FDA-Public Use
  Company Number: JP-SANOFI-AVENTIS-2010SA036573

PATIENT
  Age: 69 Year
  Sex: Male
  Weight: 60 kg

DRUGS (9)
  1. TAKEPRON [Concomitant]
     Route: 048
     Dates: end: 20100618
  2. PANALDINE [Suspect]
     Route: 048
     Dates: start: 20100512, end: 20100610
  3. MICARDIS [Concomitant]
     Route: 048
     Dates: end: 20100616
  4. ASPIRIN [Concomitant]
     Route: 048
     Dates: end: 20100618
  5. PLAVIX [Suspect]
     Indication: ANGINA PECTORIS
     Route: 048
     Dates: start: 20100610, end: 20100618
  6. ARTIST [Concomitant]
     Route: 048
     Dates: start: 20100512, end: 20100616
  7. URSO 250 [Concomitant]
     Route: 048
     Dates: start: 20100610
  8. EPADEL [Concomitant]
     Route: 048
     Dates: start: 20100512, end: 20100616
  9. MEVALOTIN [Concomitant]
     Route: 048
     Dates: end: 20100616

REACTIONS (4)
  - CHOLESTASIS [None]
  - GRANULOCYTOPENIA [None]
  - OFF LABEL USE [None]
  - SEPSIS [None]
